FAERS Safety Report 14047886 (Version 1)
Quarter: 2017Q4

REPORT INFORMATION
  Report Type: Spontaneous
  Country: US (occurrence: US)
  Receive Date: 20171005
  Receipt Date: 20171005
  Transmission Date: 20180321
  Serious: Yes (Other)
  Sender: FDA-Public Use
  Company Number: None

PATIENT
  Age: 60 Year
  Sex: Female

DRUGS (1)
  1. MONISTAT 3 [Suspect]
     Active Substance: MICONAZOLE NITRATE
     Dates: start: 20171003, end: 20171003

REACTIONS (3)
  - Vulvovaginal burning sensation [None]
  - Burning sensation [None]
  - Haemorrhage [None]

NARRATIVE: CASE EVENT DATE: 20171003
